FAERS Safety Report 24431734 (Version 2)
Quarter: 2024Q4

REPORT INFORMATION
  Report Type: Report from Study
  Country: US (occurrence: US)
  Receive Date: 20241014
  Receipt Date: 20241107
  Transmission Date: 20250114
  Serious: Yes (Hospitalization)
  Sender: BOEHRINGER INGELHEIM
  Company Number: US-BoehringerIngelheim-2024-BI-051440

PATIENT
  Age: 67 Year
  Sex: Female

DRUGS (2)
  1. OFEV [Suspect]
     Active Substance: NINTEDANIB
     Indication: Interstitial lung disease
     Dosage: WITH FOOD
     Route: 048
     Dates: start: 20240820, end: 20240902
  2. OFEV [Suspect]
     Active Substance: NINTEDANIB
     Dosage: WITH FOOD
     Route: 048

REACTIONS (11)
  - Nausea [Unknown]
  - Vomiting [Unknown]
  - Abdominal pain upper [Unknown]
  - Abdominal discomfort [Unknown]
  - Blood urine present [Unknown]
  - Headache [Not Recovered/Not Resolved]
  - Dizziness [Unknown]
  - Ear haemorrhage [Unknown]
  - Fatigue [Unknown]
  - Fall [Unknown]
  - Wrist fracture [Unknown]

NARRATIVE: CASE EVENT DATE: 20240101
